FAERS Safety Report 15285741 (Version 1)
Quarter: 2018Q3

REPORT INFORMATION
  Report Type: Spontaneous
  Country: DE (occurrence: DE)
  Receive Date: 20180816
  Receipt Date: 20180816
  Transmission Date: 20181010
  Serious: Yes (Other)
  Sender: FDA-Public Use
  Company Number: DE-ASTRAZENECA-2018SF02992

PATIENT
  Age: 2849 Week
  Sex: Female

DRUGS (4)
  1. SPIRIVA RESPIMAT [Concomitant]
     Active Substance: TIOTROPIUM BROMIDE
     Dosage: 2.5 MCG
  2. SALBULAIR [Concomitant]
     Active Substance: ALBUTEROL SULFATE
     Dosage: 100 MCG AUTOHALER IF NEEDED
  3. VIANI FORTE [Concomitant]
     Active Substance: FLUTICASONE PROPIONATE\SALMETEROL XINAFOATE
     Dosage: 50 MCG/500 MCG
  4. FASENRA [Suspect]
     Active Substance: BENRALIZUMAB
     Dosage: 1
     Route: 058
     Dates: start: 20180705, end: 20180717

REACTIONS (3)
  - Oropharyngeal pain [Unknown]
  - Lymphadenopathy [Unknown]
  - Oral herpes [Recovered/Resolved]

NARRATIVE: CASE EVENT DATE: 20180707
